FAERS Safety Report 10485474 (Version 2)
Quarter: 2014Q4

REPORT INFORMATION
  Report Type: Spontaneous
  Country: TW (occurrence: TW)
  Receive Date: 20140930
  Receipt Date: 20141010
  Transmission Date: 20150528
  Serious: Yes (Death, Life-Threatening, Hospitalization, Other)
  Sender: FDA-Public Use
  Company Number: TW-ACTELION-A-CH2014-105710

PATIENT
  Age: 52 Year
  Sex: Male

DRUGS (3)
  1. OPSUMIT [Suspect]
     Active Substance: MACITENTAN
     Indication: PULMONARY ARTERIAL HYPERTENSION
     Dosage: 10 MG, QD
     Route: 048
     Dates: start: 20140820, end: 20140910
  2. REVATIO [Concomitant]
     Active Substance: SILDENAFIL CITRATE
     Dosage: UNK
     Dates: start: 20120308
  3. WARFARIN [Suspect]
     Active Substance: WARFARIN
     Indication: PRODUCT USED FOR UNKNOWN INDICATION
     Dosage: UNK
     Route: 065
     Dates: start: 20140308

REACTIONS (20)
  - Acute kidney injury [Unknown]
  - Pneumonia [Unknown]
  - Upper gastrointestinal haemorrhage [Unknown]
  - Transfusion [Unknown]
  - Hypovolaemic shock [Fatal]
  - Pulseless electrical activity [Fatal]
  - General physical health deterioration [Unknown]
  - Agitation [Fatal]
  - Melaena [Unknown]
  - Dyspnoea [Unknown]
  - Lactic acidosis [Unknown]
  - Respiratory failure [Unknown]
  - Tachycardia [Fatal]
  - Metabolic acidosis [Unknown]
  - Respiratory acidosis [Unknown]
  - Septic shock [Unknown]
  - Hyperkalaemia [Unknown]
  - Haematemesis [Unknown]
  - Nasopharyngitis [Unknown]
  - Haemoptysis [Unknown]

NARRATIVE: CASE EVENT DATE: 20140907
